FAERS Safety Report 8836029 (Version 2)
Quarter: 2013Q1

REPORT INFORMATION
  Report Type: Spontaneous
  Country: US (occurrence: US)
  Receive Date: 20121011
  Receipt Date: 20130220
  Transmission Date: 20140127
  Serious: No
  Sender: FDA-Public Use
  Company Number: US-PFIZER INC-2012251655

PATIENT
  Age: 63 Year
  Sex: Male
  Weight: 99.77 kg

DRUGS (9)
  1. LYRICA [Suspect]
     Indication: PHANTOM PAIN
     Dosage: UNK(100MG IN THE MORNING AND 150MG IN THE EVENING), 2X/DAY
  2. LYRICA [Suspect]
     Dosage: UNK, 1X/DAY
  3. NEXIUM [Concomitant]
     Indication: DYSPEPSIA
     Dosage: UNK, 1X/DAY
  4. ACETYLSALICYLIC ACID [Concomitant]
     Indication: CARDIAC DISORDER
     Dosage: 86 MG, 1X/DAY
  5. ATENOLOL [Concomitant]
     Indication: CARDIAC DISORDER
     Dosage: UNK
  6. IMDUR [Concomitant]
     Indication: CARDIAC DISORDER
     Dosage: UNK
  7. VYTORIN [Concomitant]
     Indication: BLOOD CHOLESTEROL ABNORMAL
     Dosage: UNK
  8. TOVIAZ [Concomitant]
     Indication: BLADDER DISORDER
     Dosage: UNK
  9. VESICARE [Concomitant]
     Indication: BLADDER DISORDER
     Dosage: UNK

REACTIONS (3)
  - Pain [Not Recovered/Not Resolved]
  - Insomnia [Unknown]
  - Intentional drug misuse [Unknown]
